FAERS Safety Report 25630360 (Version 3)
Quarter: 2025Q3

REPORT INFORMATION
  Report Type: Report from Study
  Country: US (occurrence: US)
  Receive Date: 20250801
  Receipt Date: 20250918
  Transmission Date: 20251020
  Serious: No
  Sender: SUNOVION
  Company Number: US-SUMITOMO PHARMA SWITZERLAND GMBH-2025SPA009440

PATIENT
  Age: 80 Year
  Sex: Male

DRUGS (2)
  1. ORGOVYX [Suspect]
     Active Substance: RELUGOLIX
     Indication: Prostate cancer
     Route: 048
  2. ORGOVYX [Suspect]
     Active Substance: RELUGOLIX
     Route: 048

REACTIONS (12)
  - Nasopharyngitis [Unknown]
  - Pain [Unknown]
  - Urinary incontinence [Unknown]
  - Night sweats [Unknown]
  - Chills [Unknown]
  - Lethargy [Unknown]
  - Sleep disorder [Unknown]
  - Irritability [Unknown]
  - Decreased appetite [Unknown]
  - Arthralgia [Unknown]
  - Hot flush [Unknown]
  - Insomnia [Unknown]
